FAERS Safety Report 7903199-5 (Version None)
Quarter: 2011Q4

REPORT INFORMATION
  Report Type: 
  Country: None (occurrence: None)
  Receive Date: 20111103
  Receipt Date: 20111027
  Transmission Date: 20120403
  Serious: Yes (Other)
  Sender: FDA-Public Use
  Company Number: 2011SP043505

PATIENT
  Sex: Male

DRUGS (1)
  1. SAPHRIS [Suspect]
     Indication: AFFECTIVE DISORDER
     Dosage: 10 MG;HS;PO
     Route: 048

REACTIONS (3)
  - PHARYNGEAL OEDEMA [None]
  - DYSTONIA [None]
  - OFF LABEL USE [None]
